FAERS Safety Report 8789650 (Version 1)
Quarter: 2012Q4

REPORT INFORMATION
  Report Type: Spontaneous
  Country: US (occurrence: None)
  Receive Date: 20120910
  Receipt Date: 20120910
  Transmission Date: 20130627
  Serious: Yes (Disabling, Other)
  Sender: FDA-Public Use
  Company Number: None

PATIENT
  Age: 28 Year
  Sex: Female
  Weight: 63.5 kg

DRUGS (1)
  1. VYVANSE [Suspect]
     Indication: ADHD
     Dosage: 50 MG ONCE DAILY
     Route: 048
     Dates: start: 20111115, end: 20120905

REACTIONS (2)
  - Bundle branch block left [None]
  - Cardiomyopathy [None]
